FAERS Safety Report 7593057-0 (Version None)
Quarter: 2011Q3

REPORT INFORMATION
  Report Type: 
  Country: None (occurrence: None)
  Receive Date: 20110706
  Receipt Date: 20110628
  Transmission Date: 20111222
  Serious: Yes (Other)
  Sender: FDA-Public Use
  Company Number: HR-ROCHE-786410

PATIENT
  Age: 24 Year
  Sex: Female

DRUGS (3)
  1. ACCUTANE [Suspect]
     Route: 048
     Dates: start: 20110201, end: 20110201
  2. TAMIFLU [Suspect]
     Route: 048
     Dates: start: 20110201, end: 20110201
  3. DOXYCYCLINE [Suspect]
     Indication: PROPHYLAXIS URINARY TRACT INFECTION
     Route: 065
     Dates: start: 20101201, end: 20101201

REACTIONS (3)
  - MATERNAL EXPOSURE DURING PREGNANCY [None]
  - SELF-MEDICATION [None]
  - PREGNANCY [None]
